FAERS Safety Report 8602338-0 (Version None)
Quarter: 2012Q3

REPORT INFORMATION
  Report Type: 
  Country: None (occurrence: None)
  Receive Date: 20120817
  Receipt Date: 20120814
  Transmission Date: 20120928
  Serious: Yes (Other)
  Sender: FDA-Public Use
  Company Number: US-ROCHE-1101775

PATIENT
  Sex: Female

DRUGS (3)
  1. BONIVA [Suspect]
     Indication: OSTEOPOROSIS
     Route: 065
     Dates: start: 20060101, end: 20070101
  2. BONIVA [Suspect]
     Route: 065
     Dates: start: 20090501, end: 20110201
  3. FOSAMAX [Suspect]
     Indication: OSTEOPOROSIS
     Route: 065
     Dates: start: 20070101, end: 20090501

REACTIONS (4)
  - LOW TURNOVER OSTEOPATHY [None]
  - EMOTIONAL DISTRESS [None]
  - FEMUR FRACTURE [None]
  - ANXIETY [None]
